FAERS Safety Report 8915995 (Version 1)
Quarter: 2012Q4

REPORT INFORMATION
  Report Type: 
  Country: US (occurrence: US)
  Receive Date: 20121119
  Receipt Date: 20121119
  Transmission Date: 20130627
  Serious: Yes (Hospitalization)
  Sender: FDA-Public Use
  Company Number: US-GLAXOSMITHKLINE-A1002133A

PATIENT
  Age: 36 Year
  Sex: Female

DRUGS (3)
  1. TYKERB [Suspect]
     Indication: BREAST CANCER
     Dosage: 1250MG Per day
     Route: 048
     Dates: start: 20120710
  2. XELODA [Concomitant]
  3. FAMOTIDINE [Concomitant]

REACTIONS (2)
  - Metastases to central nervous system [Unknown]
  - Brain operation [Unknown]
